FAERS Safety Report 20007188 (Version 1)
Quarter: 2021Q4

REPORT INFORMATION
  Report Type: Spontaneous
  Country: IT (occurrence: IT)
  Receive Date: 20211028
  Receipt Date: 20211028
  Transmission Date: 20220303
  Serious: Yes (Other)
  Sender: FDA-Public Use
  Company Number: IT-SAMSUNG-SB-2021-22889

PATIENT
  Age: 73 Year
  Sex: Female

DRUGS (7)
  1. TRASTUZUMAB [Suspect]
     Active Substance: TRASTUZUMAB
     Indication: Breast cancer recurrent
     Dosage: UNKNOWN
     Route: 065
     Dates: start: 201803, end: 201901
  2. TRASTUZUMAB [Suspect]
     Active Substance: TRASTUZUMAB
     Dosage: UNKNOWN. RE-STARTED
     Route: 065
  3. PERTUZUMAB [Suspect]
     Active Substance: PERTUZUMAB
     Indication: Breast cancer recurrent
     Dosage: UNKNOWN
     Route: 065
     Dates: start: 201803, end: 201901
  4. PERTUZUMAB [Suspect]
     Active Substance: PERTUZUMAB
     Dosage: UNKNOWN. RE-STARTED
     Route: 065
  5. PACLITAXEL [Suspect]
     Active Substance: PACLITAXEL
     Indication: Breast cancer recurrent
     Dosage: UNKNOWN
     Route: 065
     Dates: start: 201803, end: 201901
  6. PACLITAXEL [Suspect]
     Active Substance: PACLITAXEL
     Dosage: UNKNOWN. RE-STARTED
     Route: 065
  7. DOCETAXEL [Concomitant]
     Active Substance: DOCETAXEL
     Indication: Breast cancer female
     Dosage: UNKNOWN
     Route: 065

REACTIONS (4)
  - Left ventricular dysfunction [Recovered/Resolved]
  - Dyspnoea exertional [Recovered/Resolved]
  - Ejection fraction decreased [Recovered/Resolved]
  - Cardiotoxicity [Recovered/Resolved]

NARRATIVE: CASE EVENT DATE: 20181201
